FAERS Safety Report 8905851 (Version 1)
Quarter: 2012Q4

REPORT INFORMATION
  Report Type: 
  Country: SE (occurrence: SE)
  Receive Date: 20121113
  Receipt Date: 20121113
  Transmission Date: 20130627
  Serious: Yes (Hospitalization)
  Sender: FDA-Public Use
  Company Number: SE-PFIZER INC-2012279013

PATIENT
  Age: 48 Year
  Sex: Female
  Weight: 69.1 kg

DRUGS (22)
  1. GENOTROPIN [Suspect]
     Dosage: 0.7 mg, 1x/day,7 injections/week
     Route: 058
     Dates: start: 20010913
  2. LEVOTHYROXINE [Concomitant]
     Indication: THYROID DISORDER
     Dosage: UNK
     Dates: start: 19890401
  3. LEVOTHYROXINE [Concomitant]
     Indication: PRIMARY HYPOTHYROIDISM
  4. PROVERA [Concomitant]
     Indication: HAEMORRHAGE
     Dosage: UNK
     Dates: start: 19960112
  5. ESTRADERM [Concomitant]
     Indication: HAEMORRHAGE
     Dosage: UNK
     Dates: start: 19960119
  6. AMOXICILLIN [Concomitant]
     Indication: ACUTE SINUSITIS
     Dosage: UNK
     Dates: start: 19970131
  7. TREO COMP /OLD FORM/ [Concomitant]
     Indication: HEADACHE
     Dosage: UNK
     Dates: start: 19971002
  8. ZANTAC [Concomitant]
     Indication: GASTRITIS
     Dosage: UNK
     Dates: start: 19980320
  9. ZANTAC [Concomitant]
     Indication: DUODENITIS
  10. CORTONE [Concomitant]
     Indication: ACTH DECREASED
     Dosage: UNK
     Dates: start: 19890401
  11. PANOCOD [Concomitant]
     Indication: HEADACHE
     Dosage: UNK
     Dates: start: 19980325
  12. LOSEC [Concomitant]
     Indication: GASTRITIS
     Dosage: UNK
     Dates: start: 19980325
  13. LOSEC [Concomitant]
     Indication: DUODENITIS
  14. KAVEPENIN [Concomitant]
     Indication: ACUTE UPPER RESPIRATORY TRACT INFECTION
     Dosage: UNK
     Dates: start: 19980804
  15. SOMADRIL COMP. [Concomitant]
     Indication: NEURALGIA NOS
     Dosage: UNK
     Dates: start: 19980904
  16. SOMADRIL COMP. [Concomitant]
     Indication: NEURITIS NOS
  17. PEPCIDIN [Concomitant]
     Indication: GASTRITIS
     Dosage: UNK
     Dates: start: 19990721
  18. PEPCIDIN [Concomitant]
     Indication: DUODENITIS
  19. CEFAMOX [Concomitant]
     Indication: ACUTE APPENDICITIS
     Dosage: UNK
     Dates: start: 20000621
  20. FLAGYL ^MAY^ [Concomitant]
     Indication: ACUTE APPENDICITIS
     Dosage: UNK
     Dates: start: 20000621
  21. ANERVAN [Concomitant]
     Indication: MIGRAINE
     Dosage: UNK
     Dates: start: 19971002
  22. EVOREL [Concomitant]
     Indication: UNSPECIFIED DISORDER OF LACTATION
     Dosage: UNK
     Dates: start: 19960920

REACTIONS (1)
  - Injury [Unknown]
